FAERS Safety Report 16013702 (Version 1)
Quarter: 2019Q1

REPORT INFORMATION
  Report Type: Spontaneous
  Country: US (occurrence: US)
  Receive Date: 20190227
  Receipt Date: 20190227
  Transmission Date: 20190418
  Serious: Yes (Other)
  Sender: FDA-Public Use
  Company Number: US-SA-2019SA049420

PATIENT
  Age: 62 Year
  Sex: Female
  Weight: 76.7 kg

DRUGS (1)
  1. LOVENOX [Suspect]
     Active Substance: ENOXAPARIN SODIUM
     Dosage: 1 DF, UNK
     Route: 058

REACTIONS (1)
  - Pulmonary embolism [Recovering/Resolving]
